FAERS Safety Report 17164372 (Version 1)
Quarter: 2019Q4

REPORT INFORMATION
  Report Type: Spontaneous
  Country: DE (occurrence: DE)
  Receive Date: 20191217
  Receipt Date: 20191217
  Transmission Date: 20200122
  Serious: Yes (Hospitalization, Other)
  Sender: FDA-Public Use
  Company Number: DE-MYLANLABS-2019M1123098

PATIENT
  Age: 84 Year
  Sex: Female

DRUGS (2)
  1. AMLODIPINE BESILATE/OLMESARTAN [Suspect]
     Active Substance: AMLODIPINE BESYLATE\OLMESARTAN MEDOXOMIL
     Indication: PRODUCT USED FOR UNKNOWN INDICATION
     Dosage: NK MG, NK
     Route: 065
  2. METOPROLOL. [Suspect]
     Active Substance: METOPROLOL
     Indication: PRODUCT USED FOR UNKNOWN INDICATION
     Dosage: 47.5 MG, NK
     Route: 065

REACTIONS (2)
  - Syncope [Unknown]
  - Product prescribing error [Unknown]

NARRATIVE: CASE EVENT DATE: 20180218
